FAERS Safety Report 13435366 (Version 2)
Quarter: 2017Q2

REPORT INFORMATION
  Report Type: Spontaneous
  Country: US (occurrence: US)
  Receive Date: 20170413
  Receipt Date: 20170519
  Transmission Date: 20170830
  Serious: Yes (Other)
  Sender: FDA-Public Use
  Company Number: US-SHIRE-US201707764

PATIENT
  Age: 23 Year
  Sex: Male
  Weight: 86.2 kg

DRUGS (7)
  1. VPRIV [Suspect]
     Active Substance: VELAGLUCERASE ALFA
     Indication: GAUCHER^S DISEASE
     Dosage: 4400 UNITS, UNKNOWN
     Route: 041
     Dates: start: 20131119, end: 20170403
  2. METHADONE [Concomitant]
     Active Substance: METHADONE HYDROCHLORIDE
     Indication: SUBSTANCE USE DISORDER
     Dosage: 5 MG, 1X/DAY:QD
     Route: 065
  3. TYLENOL [Concomitant]
     Active Substance: ACETAMINOPHEN
     Indication: PREMEDICATION
     Dosage: UNK, UNKNOWN
     Route: 065
  4. BC                                 /00110301/ [Concomitant]
     Indication: PRODUCT USED FOR UNKNOWN INDICATION
     Dosage: UNK, UNKNOWN
     Route: 065
  5. ZOLOFT [Concomitant]
     Active Substance: SERTRALINE HYDROCHLORIDE
     Indication: PRODUCT USED FOR UNKNOWN INDICATION
     Dosage: 50 MG, 1X/DAY:QD
     Route: 065
  6. ADVIL [Concomitant]
     Active Substance: IBUPROFEN
     Indication: PREMEDICATION
     Dosage: UNK, UNKNOWN
     Route: 065
  7. ZOFRAN [Concomitant]
     Active Substance: ONDANSETRON HYDROCHLORIDE
     Indication: PRODUCT USED FOR UNKNOWN INDICATION
     Dosage: 4 MG, 1X/DAY:QD
     Route: 065

REACTIONS (9)
  - Vomiting [Unknown]
  - Fatigue [Unknown]
  - Migraine [Not Recovered/Not Resolved]
  - Substance abuser [Not Recovered/Not Resolved]
  - Bone pain [Unknown]
  - Depression [Unknown]
  - Infusion related reaction [Not Recovered/Not Resolved]
  - Weight increased [Unknown]
  - Imprisonment [Not Recovered/Not Resolved]

NARRATIVE: CASE EVENT DATE: 20161001
